FAERS Safety Report 17245088 (Version 1)
Quarter: 2020Q1

REPORT INFORMATION
  Report Type: Spontaneous
  Country: FR (occurrence: FR)
  Receive Date: 20200108
  Receipt Date: 20200108
  Transmission Date: 20200409
  Serious: Yes (Hospitalization)
  Sender: FDA-Public Use
  Company Number: FR-ROCHE-2513065

PATIENT
  Age: 80 Year
  Sex: Male
  Weight: 77 kg

DRUGS (14)
  1. ETOPOSIDE. [Suspect]
     Active Substance: ETOPOSIDE
     Indication: SMALL CELL LUNG CANCER METASTATIC
     Dosage: MOST RECENT DOSE ON 03/OCT/2019, 4 COURSES
     Route: 041
     Dates: start: 20190710
  2. BINOCRIT [Concomitant]
     Active Substance: ERYTHROPOIETIN
  3. EUPRESSYL [URAPIDIL] [Concomitant]
     Active Substance: URAPIDIL
  4. INNOHEP [Concomitant]
     Active Substance: TINZAPARIN SODIUM
  5. PERINDOPRIL [Concomitant]
     Active Substance: PERINDOPRIL
  6. XGEVA [Concomitant]
     Active Substance: DENOSUMAB
  7. TAHOR [Concomitant]
     Active Substance: ATORVASTATIN CALCIUM
  8. PANTOPRAZOLE [Concomitant]
     Active Substance: PANTOPRAZOLE
  9. CARBOPLATINE [Suspect]
     Active Substance: CARBOPLATIN
     Indication: SMALL CELL LUNG CANCER METASTATIC
     Dosage: MOST RECENT DOSE ON 03/OCT/2019 4 COURSES
     Route: 041
     Dates: start: 20190710
  10. KARDEGIC [Concomitant]
     Active Substance: ASPIRIN DL-LYSINE
  11. IPRATROPIUM [Concomitant]
     Active Substance: IPRATROPIUM
  12. TECENTRIQ [Suspect]
     Active Substance: ATEZOLIZUMAB
     Indication: SMALL CELL LUNG CANCER METASTATIC
     Dosage: MOST RECENT DOSE ON 03/OCT/2019 4 COURSES
     Route: 041
     Dates: start: 20190710
  13. VERAPAMIL [Concomitant]
     Active Substance: VERAPAMIL HYDROCHLORIDE
  14. METFORMIN [Concomitant]
     Active Substance: METFORMIN HYDROCHLORIDE
     Route: 065

REACTIONS (1)
  - Keratitis [Recovered/Resolved]

NARRATIVE: CASE EVENT DATE: 20191016
